FAERS Safety Report 4489772-8 (Version None)
Quarter: 2004Q4

REPORT INFORMATION
  Report Type: 
  Country: None (occurrence: None)
  Receive Date: 20041026
  Receipt Date: 20041008
  Transmission Date: 20050328
  Serious: Yes (Hospitalization)
  Sender: FDA-Public Use
  Company Number: MEDI-0002298

PATIENT
  Age: 11 Month
  Sex: Female
  Weight: 3 kg

DRUGS (3)
  1. SYNAGIS [Suspect]
     Indication: ANTIVIRAL PROPHYLAXIS
     Dosage: 45 MG, 1 IN 15 D, INTRAMUSCULAR
     Route: 030
     Dates: start: 20040914, end: 20040914
  2. SYNAGIS [Suspect]
     Indication: ANTIVIRAL PROPHYLAXIS
     Dosage: 45 MG, 1 IN 15 D, INTRAMUSCULAR
     Route: 030
     Dates: start: 20041004, end: 20041004
  3. CEFPIROME SULFATE (CEFPIROME SULFATE) [Concomitant]

REACTIONS (2)
  - BLOOD CREATINE PHOSPHOKINASE INCREASED [None]
  - PYREXIA [None]
